FAERS Safety Report 10263600 (Version 2)
Quarter: 2014Q3

REPORT INFORMATION
  Report Type: Spontaneous
  Country: BR (occurrence: BR)
  Receive Date: 20140626
  Receipt Date: 20140728
  Transmission Date: 20150326
  Serious: Yes (Other)
  Sender: FDA-Public Use
  Company Number: PHHY2014BR078910

PATIENT
  Age: 27 Year
  Sex: Male
  Weight: 99 kg

DRUGS (7)
  1. TRILEPTAL [Suspect]
     Active Substance: OXCARBAZEPINE
     Dosage: 3 DF, DAILY
     Route: 048
  2. RABEPRAZOLE [Concomitant]
     Active Substance: RABEPRAZOLE
     Dosage: UNK UKN, UNK
  3. NEXIUM [Concomitant]
     Active Substance: ESOMEPRAZOLE MAGNESIUM
     Dosage: UNK UKN, UNK
  4. OMEPRAZOLE. [Concomitant]
     Active Substance: OMEPRAZOLE
     Dosage: UNK UKN, UNK
  5. PANTOPRAZOLE [Concomitant]
     Active Substance: PANTOPRAZOLE SODIUM
     Dosage: UNK UKN, UNK
  6. TRILEPTAL [Suspect]
     Active Substance: OXCARBAZEPINE
     Indication: CONVULSION
     Dosage: 2 DF, DAILY
     Route: 048
     Dates: start: 201202
  7. TRILEPTAL [Suspect]
     Active Substance: OXCARBAZEPINE
     Dosage: 4 DF, DAILY
     Route: 048

REACTIONS (17)
  - Gastritis erosive [Recovered/Resolved]
  - Abdominal pain [Recovered/Resolved]
  - Pharyngitis [Recovered/Resolved]
  - Liver disorder [Recovering/Resolving]
  - Catarrh [Recovered/Resolved]
  - Throat irritation [Recovering/Resolving]
  - Nasal discharge discolouration [Recovered/Resolved]
  - Rhinorrhoea [Recovered/Resolved]
  - Gastrointestinal pain [Not Recovered/Not Resolved]
  - Lactose intolerance [Not Recovered/Not Resolved]
  - Convulsion [Unknown]
  - Dyspepsia [Recovering/Resolving]
  - Laryngeal pain [Recovering/Resolving]
  - Cough [Recovered/Resolved]
  - Spinal pain [Recovering/Resolving]
  - Oesophageal pain [Recovering/Resolving]
  - Arthralgia [Recovering/Resolving]

NARRATIVE: CASE EVENT DATE: 20140721
